FAERS Safety Report 24893835 (Version 4)
Quarter: 2025Q1

REPORT INFORMATION
  Report Type: Report from Study
  Country: DE (occurrence: DE)
  Receive Date: 20250128
  Receipt Date: 20250314
  Transmission Date: 20250409
  Serious: Yes (Death, Hospitalization)
  Sender: ABBVIE
  Company Number: DE-ABBVIE-6102152

PATIENT
  Sex: Male

DRUGS (3)
  1. FOSCARBIDOPA\FOSLEVODOPA [Suspect]
     Active Substance: FOSCARBIDOPA\FOSLEVODOPA
     Indication: Parkinson^s disease
     Route: 058
     Dates: start: 20241230
  2. FOSCARBIDOPA\FOSLEVODOPA [Suspect]
     Active Substance: FOSCARBIDOPA\FOSLEVODOPA
     Route: 058
  3. FOSCARBIDOPA\FOSLEVODOPA [Suspect]
     Active Substance: FOSCARBIDOPA\FOSLEVODOPA
     Route: 058
     Dates: start: 20250107

REACTIONS (5)
  - Death [Fatal]
  - General physical health deterioration [Unknown]
  - Infusion site erythema [Unknown]
  - Derailment [Not Recovered/Not Resolved]
  - Product knowledge deficit [Unknown]
